FAERS Safety Report 15129082 (Version 1)
Quarter: 2018Q3

REPORT INFORMATION
  Report Type: Report from Study
  Country: US (occurrence: US)
  Receive Date: 20180711
  Receipt Date: 20180711
  Transmission Date: 20181010
  Serious: No
  Sender: FDA-Public Use
  Company Number: US-THERATECHNOLOGIES, INC.-TH-2018-00306

PATIENT

DRUGS (22)
  1. VIAGRA [Concomitant]
     Active Substance: SILDENAFIL CITRATE
     Dosage: UNK
  2. DESIPRAMINE HCL [Concomitant]
     Active Substance: DESIPRAMINE HYDROCHLORIDE
     Dosage: UNK
  3. OCUVITE [Concomitant]
     Active Substance: VITAMINS
     Dosage: UNK
  4. GABAPENTIN. [Concomitant]
     Active Substance: GABAPENTIN
     Dosage: UNK
  5. ALLEGRA [Concomitant]
     Active Substance: FEXOFENADINE HYDROCHLORIDE
     Dosage: UNK
  6. VITAMINS WITH MINERALS [Concomitant]
     Active Substance: MINERALS\VITAMINS
     Dosage: UNK
  7. YEAST [Concomitant]
     Active Substance: YEAST
     Dosage: UNK
  8. DHEA [Concomitant]
     Active Substance: PRASTERONE
     Dosage: UNK
  9. TURMERIC                           /01079602/ [Concomitant]
     Active Substance: HERBALS\TURMERIC
     Dosage: UNK
  10. TYLENOL [Concomitant]
     Active Substance: ACETAMINOPHEN
     Dosage: UNK
  11. SULINDAC. [Concomitant]
     Active Substance: SULINDAC
     Dosage: UNK
  12. TENOFOVIR DISOPROXIL FUMARATE. [Concomitant]
     Active Substance: TENOFOVIR DISOPROXIL FUMARATE
     Dosage: UNK
  13. ACYCLOVIR                          /00587301/ [Concomitant]
     Active Substance: ACYCLOVIR
     Dosage: UNK
  14. LAMIVUDINE. [Concomitant]
     Active Substance: LAMIVUDINE
     Dosage: UNK
  15. EGRIFTA [Suspect]
     Active Substance: TESAMORELIN
     Dosage: UNK
     Dates: start: 20180620
  16. ASPIRIN. [Concomitant]
     Active Substance: ASPIRIN
     Dosage: UNK
  17. COENZYME Q10 [Concomitant]
     Active Substance: UBIDECARENONE
     Dosage: UNK
  18. CIALIS [Concomitant]
     Active Substance: TADALAFIL
     Dosage: UNK
  19. NEVIRAPINE. [Concomitant]
     Active Substance: NEVIRAPINE
     Dosage: UNK
  20. VITAMIN C [Concomitant]
     Active Substance: ASCORBIC ACID
     Dosage: UNK
  21. CALCIUM [Concomitant]
     Active Substance: CALCIUM
     Dosage: UNK
  22. VITAMIN D3 [Concomitant]
     Active Substance: CHOLECALCIFEROL
     Dosage: UNK

REACTIONS (1)
  - Back pain [Not Recovered/Not Resolved]

NARRATIVE: CASE EVENT DATE: 20180623
